FAERS Safety Report 9955420 (Version 1)
Quarter: 2014Q1

REPORT INFORMATION
  Report Type: Report from Study
  Country: US (occurrence: US)
  Receive Date: 20140304
  Receipt Date: 20140304
  Transmission Date: 20141002
  Serious: No
  Sender: FDA-Public Use
  Company Number: US-ABBVIE-13P-163-1090357-00

PATIENT
  Age: 30 Year
  Sex: Male

DRUGS (3)
  1. HUMIRA [Suspect]
     Indication: CROHN^S DISEASE
     Dosage: 4 WEEKS AFTER INITIAL DOSE
     Route: 058
     Dates: start: 201302
  2. HUMIRA [Suspect]
     Route: 058
     Dates: start: 201301, end: 201301
  3. HUMIRA [Suspect]
     Dosage: 2 WEEKS AGER INITIAL DOSE
     Route: 058
     Dates: start: 201301, end: 201301

REACTIONS (6)
  - Oropharyngeal pain [Unknown]
  - Aphthous stomatitis [Recovered/Resolved]
  - Candida infection [Recovering/Resolving]
  - Pharyngeal erythema [Recovered/Resolved]
  - Oral pain [Not Recovered/Not Resolved]
  - Oropharyngeal pain [Recovered/Resolved]
